FAERS Safety Report 11629450 (Version 1)
Quarter: 2015Q4

REPORT INFORMATION
  Report Type: Report from Study
  Country: KR (occurrence: KR)
  Receive Date: 20151014
  Receipt Date: 20151014
  Transmission Date: 20160304
  Serious: Yes (Death)
  Sender: FDA-Public Use
  Company Number: KR-B.I. PHARMACEUTICALS,INC./RIDGEFIELD-2015-BI-19192BI

PATIENT
  Age: 60 Year
  Sex: Female

DRUGS (2)
  1. GILOTRIF [Suspect]
     Active Substance: AFATINIB
     Dosage: 40 MG
     Route: 048
     Dates: start: 20150524
  2. GILOTRIF [Suspect]
     Active Substance: AFATINIB
     Indication: NON-SMALL CELL LUNG CANCER
     Dosage: 40 MG
     Route: 048
     Dates: start: 20150309, end: 20150521

REACTIONS (9)
  - Loss of consciousness [Fatal]
  - Stomatitis [Recovered/Resolved]
  - Diarrhoea [Not Recovered/Not Resolved]
  - Asthenia [Fatal]
  - Acne [Not Recovered/Not Resolved]
  - Chest pain [Recovered/Resolved]
  - Rash [Not Recovered/Not Resolved]
  - Nail infection [Not Recovered/Not Resolved]
  - Cognitive disorder [Fatal]

NARRATIVE: CASE EVENT DATE: 20150319
